FAERS Safety Report 25343438 (Version 2)
Quarter: 2025Q2

REPORT INFORMATION
  Report Type: Report from Study
  Country: US (occurrence: US)
  Receive Date: 20250521
  Receipt Date: 20250530
  Transmission Date: 20250716
  Serious: Yes (Hospitalization)
  Sender: MALLINCKRODT
  Company Number: US-MALLINCKRODT-MNK202502360

PATIENT
  Age: 67 Year
  Sex: Female

DRUGS (3)
  1. CORTICOTROPIN [Suspect]
     Active Substance: CORTICOTROPIN
     Indication: Rheumatoid arthritis
     Route: 058
     Dates: start: 202502
  2. CORTICOTROPIN [Suspect]
     Active Substance: CORTICOTROPIN
     Indication: Rheumatoid factor negative
  3. CORTICOTROPIN [Suspect]
     Active Substance: CORTICOTROPIN
     Indication: Polyarthritis

REACTIONS (8)
  - Hospitalisation [Not Recovered/Not Resolved]
  - Illness [Unknown]
  - Fluid retention [Unknown]
  - Joint swelling [Unknown]
  - Abdominal distension [Unknown]
  - Injection site pain [Unknown]
  - Injection site bruising [Unknown]
  - Contusion [Unknown]

NARRATIVE: CASE EVENT DATE: 20250101
